FAERS Safety Report 22016342 (Version 2)
Quarter: 2023Q1

REPORT INFORMATION
  Report Type: Other
  Country: CN (occurrence: CN)
  Receive Date: 20230221
  Receipt Date: 20230228
  Transmission Date: 20230418
  Serious: Yes (Hospitalization, Other)
  Sender: FDA-Public Use
  Company Number: CN-002147023-NVSC2023CN029952

PATIENT

DRUGS (2)
  1. RUXOLITINIB [Suspect]
     Active Substance: RUXOLITINIB
     Indication: Granulocyte count decreased
     Dosage: 10 MG, BID
     Route: 048
     Dates: start: 20230101, end: 20230202
  2. VORICONAZOLE [Suspect]
     Active Substance: VORICONAZOLE
     Indication: Bronchopulmonary aspergillosis
     Dosage: 200 MG, BID
     Route: 048
     Dates: start: 20230119, end: 20230206

REACTIONS (7)
  - Dizziness [Recovering/Resolving]
  - Oedema [Recovering/Resolving]
  - Nausea [Recovering/Resolving]
  - Vomiting [Recovering/Resolving]
  - Urine output decreased [Unknown]
  - Anaemia [Unknown]
  - Headache [Unknown]

NARRATIVE: CASE EVENT DATE: 20230123
